FAERS Safety Report 5303754-5 (Version None)
Quarter: 2007Q2

REPORT INFORMATION
  Report Type: 
  Country: None (occurrence: None)
  Receive Date: 20070420
  Receipt Date: 20070410
  Transmission Date: 20071010
  Serious: Yes (Hospitalization, Other)
  Sender: FDA-Public Use
  Company Number: US-PFIZER INC-2006059736

PATIENT
  Sex: Male
  Weight: 83 kg

DRUGS (12)
  1. SU-011,248 [Suspect]
     Indication: RENAL CELL CARCINOMA STAGE UNSPECIFIED
     Route: 048
     Dates: start: 20060209, end: 20060419
  2. TAMSULOSIN HCL [Concomitant]
     Route: 048
  3. AMARYL [Concomitant]
     Route: 048
  4. ACTOS [Concomitant]
     Route: 048
     Dates: start: 20050601
  5. FLORINEF [Concomitant]
     Route: 048
     Dates: start: 20050330
  6. PROTONIX [Concomitant]
     Route: 048
     Dates: start: 20050601
  7. MEGACE [Concomitant]
     Route: 048
     Dates: start: 20050601, end: 20060407
  8. HYDROCORTISONE [Concomitant]
     Route: 048
     Dates: start: 20060330
  9. ZOLOFT [Concomitant]
     Route: 048
  10. DIAZEPAM [Concomitant]
     Route: 048
     Dates: start: 19870101
  11. COLACE [Concomitant]
     Route: 048
     Dates: start: 20030101
  12. MAGNESIUM OXIDE [Concomitant]
     Route: 048

REACTIONS (2)
  - ADRENAL INSUFFICIENCY [None]
  - PNEUMONIA [None]
